FAERS Safety Report 5885579-5 (Version None)
Quarter: 2008Q3

REPORT INFORMATION
  Report Type: 
  Country: None (occurrence: None)
  Receive Date: 20080916
  Receipt Date: 20080911
  Transmission Date: 20090109
  Serious: No
  Sender: FDA-Public Use
  Company Number: US-B.I. PHARMACEUTICALS,INC./RIDGEFIELD-2008-BP-14312BP

PATIENT
  Age: 48 Year
  Sex: Female

DRUGS (3)
  1. MICARDIS [Suspect]
     Dosage: 40MG
     Route: 048
     Dates: start: 20080615, end: 20080701
  2. MICARDIS [Suspect]
     Dosage: 80MG
     Route: 048
     Dates: start: 20080701, end: 20080801
  3. LEVOXYL [Concomitant]
     Indication: HYPOTHYROIDISM
     Dosage: 50MG
     Route: 048

REACTIONS (3)
  - ABDOMINAL DISCOMFORT [None]
  - BLOOD PRESSURE INCREASED [None]
  - ELECTROCARDIOGRAM QT PROLONGED [None]
